FAERS Safety Report 10162818 (Version 1)
Quarter: 2014Q2

REPORT INFORMATION
  Report Type: Spontaneous
  Country: US (occurrence: US)
  Receive Date: 20140509
  Receipt Date: 20140509
  Transmission Date: 20141212
  Serious: No
  Sender: FDA-Public Use
  Company Number: US-009507513-2012SP036189

PATIENT
  Age: 15 Year
  Sex: Female

DRUGS (3)
  1. CLARITIN [Suspect]
     Indication: SEASONAL ALLERGY
     Dosage: 10 MG, QD
     Route: 048
  2. CLARITIN [Suspect]
     Dosage: 10 MG, BID
     Route: 048
     Dates: start: 20120524
  3. CHLORAMPHENICOL [Concomitant]
     Indication: PRODUCT USED FOR UNKNOWN INDICATION
     Dosage: UNK UNK, BID

REACTIONS (1)
  - Overdose [Recovered/Resolved]
